FAERS Safety Report 19246677 (Version 1)
Quarter: 2021Q2

REPORT INFORMATION
  Report Type: Report from Study
  Country: FR (occurrence: FR)
  Receive Date: 20210512
  Receipt Date: 20210512
  Transmission Date: 20210717
  Serious: Yes (Hospitalization)
  Sender: FDA-Public Use
  Company Number: FR-CELGENEUS-FRA-20210501197

PATIENT
  Age: 73 Year
  Sex: Male
  Weight: 80 kg

DRUGS (12)
  1. POSACONAZOLE [Concomitant]
     Active Substance: POSACONAZOLE
     Indication: PROPHYLAXIS
     Dosage: 100 MG X 3 X 1 DAYS
     Route: 048
     Dates: start: 20210303, end: 20210322
  2. BACTRIM [Concomitant]
     Active Substance: SULFAMETHOXAZOLE\TRIMETHOPRIM
     Indication: PROPHYLAXIS
     Dosage: 800/160 MG X 3 X 1 WEEKS
     Route: 048
     Dates: start: 20210306, end: 20210328
  3. CALCIDOSE [Concomitant]
     Indication: PROPHYLAXIS
     Dosage: 500 MG X 3 X 1 DAYS
     Route: 048
     Dates: start: 20210218, end: 20210328
  4. SPASFON [Concomitant]
     Indication: PROPHYLAXIS
     Dosage: 40 MG X 4 X 1 DAYS
     Route: 042
     Dates: start: 20210326, end: 20210328
  5. VENETOCLAX. [Suspect]
     Active Substance: VENETOCLAX
     Indication: ACUTE MYELOID LEUKAEMIA
     Dosage: 100 MG X 1 X 1 DAYS
     Route: 048
     Dates: start: 20210219, end: 20210219
  6. LERCANDIPINE [Concomitant]
     Indication: HYPERTENSION
     Dosage: 20 MG X 1 X 1 DAYS
     Route: 048
     Dates: end: 20210326
  7. AZACITIDINE. [Suspect]
     Active Substance: AZACITIDINE
     Indication: ACUTE MYELOID LEUKAEMIA
     Dosage: 149 MG X 1 X 1 DAYS
     Route: 058
     Dates: start: 20210219, end: 20210219
  8. LEDERFOLINE [Concomitant]
     Active Substance: LEUCOVORIN CALCIUM
     Indication: PROPHYLAXIS
     Dosage: 5 MG X 1 X 1 WEEKS
     Route: 048
     Dates: start: 20210306
  9. ZYMAD [Concomitant]
     Active Substance: CHOLECALCIFEROL
     Indication: PROPHYLAXIS
     Dosage: 80000 IU X ONCE
     Route: 048
     Dates: start: 20210324, end: 20210324
  10. ROCALTROL [Concomitant]
     Active Substance: CALCITRIOL
     Indication: PROPHYLAXIS
     Dosage: 0.25 UG X 1 X 1 DAYS
     Route: 048
     Dates: start: 20210219, end: 20210328
  11. CC?90009 [Suspect]
     Active Substance: INVESTIGATIONAL PRODUCT
     Indication: ACUTE MYELOID LEUKAEMIA
     Dosage: 3 MG X 1 X 1 DAYS
     Route: 042
     Dates: start: 20210222, end: 20210222
  12. VALACICLOVIR [Concomitant]
     Active Substance: VALACYCLOVIR HYDROCHLORIDE
     Indication: PROPHYLAXIS
     Dosage: 500 MG X 2 X 1 DAYS
     Route: 048
     Dates: start: 20210301, end: 20210328

REACTIONS (2)
  - General physical health deterioration [Not Recovered/Not Resolved]
  - Aplasia [Not Recovered/Not Resolved]

NARRATIVE: CASE EVENT DATE: 20210413
